FAERS Safety Report 24238598 (Version 1)
Quarter: 2024Q3

REPORT INFORMATION
  Report Type: Spontaneous
  Country: US (occurrence: US)
  Receive Date: 20240822
  Receipt Date: 20240822
  Transmission Date: 20241017
  Serious: No
  Sender: BAYER
  Company Number: US-BAYER-2024A119182

PATIENT

DRUGS (3)
  1. CLARITIN ALLERGY [Suspect]
     Active Substance: LORATADINE
     Indication: Gait disturbance
  2. CLARITIN ALLERGY [Suspect]
     Active Substance: LORATADINE
     Indication: Arthropod bite
  3. CLARITIN ALLERGY [Suspect]
     Active Substance: LORATADINE
     Indication: Inflammation

REACTIONS (1)
  - Drug effective for unapproved indication [Unknown]
